FAERS Safety Report 6732394-6 (Version None)
Quarter: 2010Q2

REPORT INFORMATION
  Report Type: 
  Country: None (occurrence: None)
  Receive Date: 20100519
  Receipt Date: 20100511
  Transmission Date: 20101027
  Serious: Yes (Other)
  Sender: FDA-Public Use
  Company Number: JP-ROCHE-696329

PATIENT
  Sex: Female
  Weight: 22 kg

DRUGS (9)
  1. ROCEPHIN [Suspect]
     Indication: PNEUMONIA
     Dosage: ROUTE: INTRAVENOUS (NOT OTHERWISE SPECIFIED)
     Route: 042
     Dates: start: 20070702, end: 20070702
  2. MINOCYCLINE HCL [Suspect]
     Indication: PNEUMONIA MYCOPLASMAL
     Dosage: FROM: GRANULATED POWDER
     Route: 048
     Dates: start: 20070702, end: 20070703
  3. CALONAL [Suspect]
     Indication: ANALGESIC THERAPY
     Dosage: FORM: GRANULATED POWDER, TAKEN AS NEEDED:UP TO 3 TIMES A DAY.
     Route: 048
     Dates: start: 20070622
  4. CALONAL [Suspect]
     Dosage: FORM: GRANULATED POWDER, TAKEN AS NEEDED:UP TO 3 TIMES A DAY
     Route: 048
     Dates: start: 20070622
  5. MEPTIN [Concomitant]
     Dosage: FORM: GRANULATED POWDER, DIVIDED INTO 3 DOSES.
     Route: 048
     Dates: start: 20070702, end: 20070703
  6. CABAGIN-U [Concomitant]
     Route: 042
     Dates: start: 20070702, end: 20070702
  7. PRIMPERAN TAB [Concomitant]
     Route: 042
     Dates: start: 20070702, end: 20070702
  8. NAUZELIN [Concomitant]
     Dosage: DIVIDED INTO 3 DOSES.
     Route: 048
     Dates: start: 20070702, end: 20070703
  9. NAUZELIN [Concomitant]
     Dosage: TAKEN AS NEEDED:3 PIECES
     Route: 054
     Dates: start: 20070702

REACTIONS (3)
  - CHOLESTASIS [None]
  - OBLITERATIVE BRONCHIOLITIS [None]
  - STEVENS-JOHNSON SYNDROME [None]
